FAERS Safety Report 4407064-X (Version None)
Quarter: 2004Q3

REPORT INFORMATION
  Report Type: 
  Country: None (occurrence: None)
  Receive Date: 20040721
  Receipt Date: 20040712
  Transmission Date: 20050211
  Serious: Yes (Other)
  Sender: FDA-Public Use
  Company Number: 003#3#2004-00397

PATIENT
  Age: 29 Year
  Sex: Male

DRUGS (5)
  1. ISOSORBIDE DINITRATE [Suspect]
     Dosage: 20 MG BD
     Dates: start: 20040621, end: 20040622
  2. NITROGLYCERIN [Concomitant]
  3. ASPIRIN [Concomitant]
  4. FYBOGEL (ISPAGHULA) [Concomitant]
  5. LACTULOSE [Concomitant]

REACTIONS (7)
  - ARTHRALGIA [None]
  - CHEST DISCOMFORT [None]
  - CHEST PAIN [None]
  - LYMPHADENOPATHY [None]
  - NECK PAIN [None]
  - PERIPHERAL COLDNESS [None]
  - TENDERNESS [None]
